FAERS Safety Report 11485153 (Version 3)
Quarter: 2015Q4

REPORT INFORMATION
  Report Type: Spontaneous
  Country: JP (occurrence: JP)
  Receive Date: 20150909
  Receipt Date: 20151201
  Transmission Date: 20160304
  Serious: Yes (Hospitalization, Other)
  Sender: FDA-Public Use
  Company Number: JP-GLAXOSMITHKLINE-JP2015GSK110697

PATIENT
  Age: 33 Year
  Sex: Male
  Weight: 70 kg

DRUGS (6)
  1. URSO [Concomitant]
     Active Substance: URSODIOL
     Dosage: 600 MG, 1D
  2. ZETIA [Concomitant]
     Active Substance: EZETIMIBE
     Dosage: 10 MG, 1D
  3. ACYCLOVIR. [Suspect]
     Active Substance: ACYCLOVIR
     Dosage: 1500 MG, QD
     Route: 042
     Dates: start: 20130218, end: 20130220
  4. SERENACE [Concomitant]
     Active Substance: HALOPERIDOL
     Dosage: 2.5 MG, 1D
  5. GASMOTIN [Concomitant]
     Active Substance: MOSAPRIDE CITRATE
     Dosage: 15 MG, 1D
  6. SENNOSIDE [Concomitant]
     Active Substance: SENNOSIDES
     Dosage: 24 MG, 1D

REACTIONS (7)
  - Oliguria [Unknown]
  - Electrolyte imbalance [Unknown]
  - Blood creatinine increased [Recovered/Resolved]
  - Renal disorder [Recovered/Resolved]
  - Oedema [Unknown]
  - Blood urea increased [Recovered/Resolved]
  - Acute kidney injury [Unknown]

NARRATIVE: CASE EVENT DATE: 20130220
